FAERS Safety Report 10729153 (Version 1)
Quarter: 2015Q1

REPORT INFORMATION
  Report Type: Spontaneous
  Country: US (occurrence: None)
  Receive Date: 20150120
  Receipt Date: 20150120
  Transmission Date: 20150721
  Serious: Yes (Hospitalization)
  Sender: FDA-Public Use
  Company Number: None

PATIENT
  Age: 25 Year
  Sex: Female
  Weight: 60.78 kg

DRUGS (1)
  1. COMPAZINE [Suspect]
     Active Substance: PROCHLORPERAZINE MALEATE
     Indication: NAUSEA
     Dosage: 1 PILL FOUR TIMES DAILY TAKEN BY MOUTH
     Dates: start: 20141223, end: 20141227

REACTIONS (11)
  - Malaise [None]
  - Aggression [None]
  - Muscle spasms [None]
  - Back pain [None]
  - Feeling jittery [None]
  - Seizure like phenomena [None]
  - Trismus [None]
  - Agitation [None]
  - Dyspnoea [None]
  - Tremor [None]
  - Hypoaesthesia [None]

NARRATIVE: CASE EVENT DATE: 20141226
